FAERS Safety Report 7878259-8 (Version None)
Quarter: 2011Q4

REPORT INFORMATION
  Report Type: 
  Country: None (occurrence: None)
  Receive Date: 20111028
  Receipt Date: 20111024
  Transmission Date: 20120403
  Serious: Yes (Life-Threatening, Hospitalization, Other)
  Sender: FDA-Public Use
  Company Number: 2011SP049120

PATIENT
  Sex: Female
  Weight: 62.9 kg

DRUGS (4)
  1. POSACONAZOLE [Concomitant]
  2. TEMOZOLOMIDE [Suspect]
     Indication: ACUTE MYELOID LEUKAEMIA
     Dosage: 200 MG/M2;QD;PO
     Route: 048
     Dates: start: 20110801
  3. ABT-888 [Suspect]
     Indication: ACUTE MYELOID LEUKAEMIA
     Dosage: 80 MG;QD;PO, 80 MG;BID;PO
     Route: 048
     Dates: start: 20110804
  4. ABT-888 [Suspect]
     Indication: ACUTE MYELOID LEUKAEMIA
     Dosage: 80 MG;QD;PO, 80 MG;BID;PO
     Route: 048
     Dates: start: 20110801, end: 20110801

REACTIONS (10)
  - HERPES SIMPLEX [None]
  - HERPES ZOSTER [None]
  - RASH [None]
  - NEURALGIA [None]
  - HYPOTENSION [None]
  - PNEUMONIA FUNGAL [None]
  - SEPSIS [None]
  - TINEA INFECTION [None]
  - FEBRILE NEUTROPENIA [None]
  - LUNG INFECTION [None]
